FAERS Safety Report 4574563-X (Version None)
Quarter: 2005Q1

REPORT INFORMATION
  Report Type: 
  Country: None (occurrence: None)
  Receive Date: 20050208
  Receipt Date: 20040114
  Transmission Date: 20050727
  Serious: No
  Sender: FDA-Public Use
  Company Number: US-GLAXOSMITHKLINE-A0493254A

PATIENT
  Age: 39 Year
  Sex: Male

DRUGS (5)
  1. PAXIL [Suspect]
     Dosage: 50MG PER DAY
     Route: 048
  2. PAXIL [Suspect]
     Dosage: 50MG PER DAY
     Route: 048
  3. ZYPREXA [Concomitant]
  4. MULTIVITAMIN [Concomitant]
  5. TPN [Concomitant]
     Route: 065

REACTIONS (1)
  - WEIGHT DECREASED [None]
